FAERS Safety Report 9217674 (Version 7)
Quarter: 2013Q4

REPORT INFORMATION
  Report Type: Spontaneous
  Country: JP (occurrence: JP)
  Receive Date: 20130408
  Receipt Date: 20131108
  Transmission Date: 20140711
  Serious: Yes (Life-Threatening, Hospitalization, Other)
  Sender: FDA-Public Use
  Company Number: JP-ASTRAZENECA-2013SE21756

PATIENT
  Age: 9931 Day
  Sex: Female
  Weight: 47 kg

DRUGS (21)
  1. SEROQUEL [Suspect]
     Indication: BORDERLINE PERSONALITY DISORDER
     Route: 048
     Dates: end: 20130324
  2. SEROQUEL [Suspect]
     Indication: DEPRESSION
     Route: 048
     Dates: end: 20130324
  3. SEROQUEL [Suspect]
     Indication: BORDERLINE PERSONALITY DISORDER
     Route: 048
     Dates: start: 20130325, end: 20130325
  4. SEROQUEL [Suspect]
     Indication: DEPRESSION
     Route: 048
     Dates: start: 20130325, end: 20130325
  5. FENTANYL [Suspect]
     Indication: CARDIO-RESPIRATORY ARREST
     Dosage: 20-40 UG/HR DAILY
     Route: 041
     Dates: start: 20130328, end: 20130330
  6. RISPERDAL [Suspect]
     Indication: DEPRESSION
     Route: 048
     Dates: start: 20130325, end: 20130325
  7. RISPERDAL [Suspect]
     Indication: SUICIDE ATTEMPT
     Route: 048
     Dates: start: 20130325, end: 20130325
  8. ZYPREXA [Suspect]
     Indication: DEPRESSION
     Route: 048
     Dates: start: 20130325, end: 20130325
  9. ZYPREXA [Suspect]
     Indication: SUICIDE ATTEMPT
     Route: 048
     Dates: start: 20130325, end: 20130325
  10. MIDAZOLAM [Suspect]
     Indication: CARDIO-RESPIRATORY ARREST
     Route: 041
     Dates: start: 20130326, end: 20130330
  11. DEPAKENE [Concomitant]
     Indication: BORDERLINE PERSONALITY DISORDER
  12. RIVOTRIL [Concomitant]
     Indication: BORDERLINE PERSONALITY DISORDER
  13. DIAZEPAM [Concomitant]
     Indication: CARDIO-RESPIRATORY ARREST
     Dates: start: 20130326, end: 20130326
  14. LEXOTAN [Concomitant]
     Indication: BORDERLINE PERSONALITY DISORDER
  15. ACETAMINOPHEN [Concomitant]
     Indication: PYREXIA
     Route: 054
     Dates: start: 20130326, end: 20130326
  16. ACETAMINOPHEN [Concomitant]
     Indication: PYREXIA
     Route: 048
     Dates: start: 20130330, end: 20130330
  17. ADRENALINE [Concomitant]
     Indication: CARDIO-RESPIRATORY ARREST
     Dates: start: 20130326, end: 20130326
  18. FOSPHENYTOIN SODIUM [Concomitant]
     Indication: CARDIO-RESPIRATORY ARREST
     Dates: start: 20130326, end: 20130326
  19. DOPAMINE [Concomitant]
     Indication: BLOOD PRESSURE DECREASED
     Dates: start: 20130326, end: 20130326
  20. NORADRENALINE [Concomitant]
     Indication: BLOOD PRESSURE DECREASED
     Dates: start: 20130326, end: 20130326
  21. INTRALIPID [Concomitant]
     Indication: CARDIO-RESPIRATORY ARREST
     Dates: start: 20130326, end: 20130326

REACTIONS (10)
  - Overdose [Unknown]
  - Suicide attempt [Unknown]
  - Cardio-respiratory arrest [Recovering/Resolving]
  - Status epilepticus [Recovering/Resolving]
  - Altered state of consciousness [Recovered/Resolved]
  - Hallucination [Recovered/Resolved]
  - Retrograde amnesia [Not Recovered/Not Resolved]
  - Cerebral infarction [Unknown]
  - Hypopnoea [Recovered/Resolved]
  - Off label use [Unknown]
